FAERS Safety Report 6689301-4 (Version None)
Quarter: 2010Q2

REPORT INFORMATION
  Report Type: 
  Country: None (occurrence: None)
  Receive Date: 20100416
  Receipt Date: 20100409
  Transmission Date: 20101027
  Serious: No
  Sender: FDA-Public Use
  Company Number: 20097219

PATIENT
  Sex: Male

DRUGS (1)
  1. LIORESAL [Suspect]
     Indication: MUSCLE SPASTICITY
     Dosage: INTRATHECAL
     Route: 037

REACTIONS (5)
  - DEATH OF RELATIVE [None]
  - DEPRESSION [None]
  - MUSCULOSKELETAL STIFFNESS [None]
  - REFUSAL OF TREATMENT BY PATIENT [None]
  - THERAPEUTIC RESPONSE DECREASED [None]
